FAERS Safety Report 19348112 (Version 1)
Quarter: 2021Q2

REPORT INFORMATION
  Report Type: Spontaneous
  Country: US (occurrence: US)
  Receive Date: 20210529
  Receipt Date: 20210529
  Transmission Date: 20210717
  Serious: Yes (Hospitalization)
  Sender: FDA-Public Use
  Company Number: None

PATIENT
  Age: 65 Year
  Sex: Male
  Weight: 112.5 kg

DRUGS (3)
  1. ETESEVIMAB. [Concomitant]
     Active Substance: ETESEVIMAB
     Dates: start: 20210528, end: 20210528
  2. BAMLANIVIMAB/ETESEVIMAB [Suspect]
     Active Substance: BAMLANIVIMAB\ETESEVIMAB
  3. BAMLANIVIMAB. [Concomitant]
     Active Substance: BAMLANIVIMAB
     Dates: start: 20210528, end: 20210528

REACTIONS (3)
  - Chest pain [None]
  - Syncope [None]
  - Pyrexia [None]

NARRATIVE: CASE EVENT DATE: 20210528
